FAERS Safety Report 5575730-9 (Version None)
Quarter: 2007Q4

REPORT INFORMATION
  Report Type: 
  Country: None (occurrence: None)
  Receive Date: 20071221
  Receipt Date: 20071214
  Transmission Date: 20080405
  Serious: Yes (Life-Threatening, Hospitalization)
  Sender: FDA-Public Use
  Company Number: MEDI-0006321

PATIENT
  Age: 11 Month
  Sex: Male

DRUGS (2)
  1. SYNAGIS [Suspect]
     Indication: BRONCHOPULMONARY DYSPLASIA
     Dosage: 200, 2 IN 2 M, INTRAMUSCULAR
     Route: 030
     Dates: start: 20071016, end: 20071016
  2. OXYGEN (OXYGEN) [Concomitant]

REACTIONS (4)
  - BRONCHOSPASM [None]
  - INTERCOSTAL RETRACTION [None]
  - PYREXIA [None]
  - RESPIRATORY DISORDER [None]
